FAERS Safety Report 11523804 (Version 1)
Quarter: 2015Q3

REPORT INFORMATION
  Report Type: Spontaneous
  Country: US (occurrence: US)
  Receive Date: 20150918
  Receipt Date: 20150918
  Transmission Date: 20151125
  Serious: No
  Sender: FDA-Public Use
  Company Number: US-ROCHE-721164

PATIENT
  Sex: Male
  Weight: 101.8 kg

DRUGS (11)
  1. PEGASYS [Suspect]
     Active Substance: PEGINTERFERON ALFA-2A
     Indication: HEPATITIS C
     Dosage: DATE OF USE: 12 WEEKS
     Route: 058
  2. OMEPRAZOLE. [Concomitant]
     Active Substance: OMEPRAZOLE
     Dosage: DATE OF USE: MORE THAN 12 WEEKS
     Route: 065
  3. METOPROLOL [Concomitant]
     Active Substance: METOPROLOL
     Dosage: DATE OF USE: MORE THAN 12 WEEKS
     Route: 065
  4. COPEGUS [Suspect]
     Active Substance: RIBAVIRIN
     Indication: HEPATITIS C
     Dosage: DATE OF USE: 12 WEEKS
     Route: 048
  5. HCTZ [Concomitant]
     Active Substance: HYDROCHLOROTHIAZIDE
     Dosage: DATE OF USE: MORE THAN 12 WEEKS
     Route: 065
  6. AMLODIPINE [Concomitant]
     Active Substance: AMLODIPINE BESYLATE
     Dosage: DATE OF USE: MORE THAN 12 WEEKS
     Route: 065
  7. EZETIMIBE. [Concomitant]
     Active Substance: EZETIMIBE
     Dosage: DATE OF USE: MORE THAN 12 WEEKS
     Route: 065
  8. NAPROXEN. [Concomitant]
     Active Substance: NAPROXEN
     Dosage: DATE OF USE: MORE THAN 12 WEEKS
     Route: 065
  9. POTASSIUM [Concomitant]
     Active Substance: POTASSIUM
     Dosage: DATE OF USE: MORE THAN 12 WEEKS
     Route: 065
  10. LISINOPRIL. [Concomitant]
     Active Substance: LISINOPRIL
     Dosage: DATE OF USE: MORE THAN 12 WEEKS
     Route: 065
  11. CLONIDINE. [Concomitant]
     Active Substance: CLONIDINE
     Dosage: DATE OF USE: MORE THAN 12 WEEKS
     Route: 065

REACTIONS (1)
  - Injection site pain [Unknown]
